FAERS Safety Report 9979653 (Version 1)
Quarter: 2014Q1

REPORT INFORMATION
  Report Type: Report from Study
  Country: US (occurrence: US)
  Receive Date: 20140306
  Receipt Date: 20140306
  Transmission Date: 20141002
  Serious: No
  Sender: FDA-Public Use
  Company Number: US-ABBVIE-13P-163-1170389-00

PATIENT
  Sex: Female

DRUGS (2)
  1. HUMIRA [Suspect]
     Indication: CROHN^S DISEASE
     Dates: start: 2007, end: 201310
  2. IMITREX [Concomitant]
     Indication: MIGRAINE
     Route: 050

REACTIONS (10)
  - Joint dislocation [Unknown]
  - Crohn^s disease [Not Recovered/Not Resolved]
  - Cyst [Unknown]
  - Migraine [Unknown]
  - Heart rate increased [Unknown]
  - Headache [Unknown]
  - Diarrhoea [Unknown]
  - Muscle spasms [Unknown]
  - Pain [Unknown]
  - Scoliosis [Unknown]
